FAERS Safety Report 6795992-X (Version None)
Quarter: 2010Q2

REPORT INFORMATION
  Report Type: 
  Country: None (occurrence: None)
  Receive Date: 20100625
  Receipt Date: 20100612
  Transmission Date: 20101027
  Serious: Yes (Other)
  Sender: FDA-Public Use
  Company Number: PHHY2010CA38526

PATIENT
  Sex: Male

DRUGS (1)
  1. DIOVAN HCT [Suspect]
     Dosage: 80/12.5 MG
     Route: 048
     Dates: start: 20100201, end: 20100501

REACTIONS (4)
  - FATIGUE [None]
  - LICHEN PLANUS [None]
  - ORAL MUCOSAL ERUPTION [None]
  - SOMNOLENCE [None]
